FAERS Safety Report 6162629-2 (Version None)
Quarter: 2009Q2

REPORT INFORMATION
  Report Type: 
  Country: None (occurrence: None)
  Receive Date: 20090417
  Receipt Date: 20090403
  Transmission Date: 20091009
  Serious: Yes (Hospitalization)
  Sender: FDA-Public Use
  Company Number: PL-JNJFOC-2009030506

PATIENT
  Age: 67 Year
  Sex: Female
  Weight: 73.4 kg

DRUGS (6)
  1. DECITABINE (DECITABINE) LYOPHILIZED POWDER [Suspect]
     Indication: ACUTE MYELOID LEUKAEMIA
     Dosage: 20 MG/M2, 1 IN 1 DAY, INTRAVENOUS
     Route: 042
     Dates: start: 20090226, end: 20090302
  2. SALMETEROL (SALMETEROL) INHALATION [Concomitant]
  3. ESTRIOL (ESTRIOL) UNSPECIFIED [Concomitant]
  4. TIBOLONE (TIBOLONE) UNSPECIFIED [Concomitant]
  5. ALLOPURINOL (ALLOPURINOL) UNSPECIFIED [Concomitant]
  6. CICLESONIDE (GLUCOCORTICOIDS) [Concomitant]

REACTIONS (2)
  - FEBRILE NEUTROPENIA [None]
  - ORAL HERPES [None]
